FAERS Safety Report 15568036 (Version 2)
Quarter: 2018Q4

REPORT INFORMATION
  Report Type: Spontaneous
  Country: IT (occurrence: IT)
  Receive Date: 20181030
  Receipt Date: 20181119
  Transmission Date: 20190205
  Serious: Yes (Hospitalization, Other)
  Sender: FDA-Public Use
  Company Number: IT-GILEAD-2018-0371130

PATIENT
  Sex: Male

DRUGS (9)
  1. DEURSIL [Concomitant]
     Active Substance: URSODIOL
  2. ENTECAVIR. [Concomitant]
     Active Substance: ENTECAVIR
  3. HEPATITIS B IMMUNE GLOBULIN [Concomitant]
     Active Substance: HUMAN HEPATITIS B VIRUS IMMUNE GLOBULIN
  4. NORVASC [Concomitant]
     Active Substance: AMLODIPINE BESYLATE
  5. VOSEVI [Suspect]
     Active Substance: SOFOSBUVIR\VELPATASVIR\VOXILAPREVIR
     Indication: HEPATITIS C
     Dosage: 1 DF, QD
     Route: 048
     Dates: start: 20181010, end: 20181015
  6. PANTOPRAZOLE [Concomitant]
     Active Substance: PANTOPRAZOLE
  7. OMNIC [Concomitant]
     Active Substance: TAMSULOSIN HYDROCHLORIDE
  8. TACROLIMUS. [Concomitant]
     Active Substance: TACROLIMUS
  9. TRIATEC [RAMIPRIL] [Concomitant]

REACTIONS (3)
  - Ascites [Unknown]
  - Heteroplasia [Unknown]
  - Pleural effusion [Unknown]
